FAERS Safety Report 5801521-7 (Version None)
Quarter: 2008Q3

REPORT INFORMATION
  Report Type: 
  Country: None (occurrence: None)
  Receive Date: 20080703
  Receipt Date: 20080703
  Transmission Date: 20090109
  Serious: Yes (Other)
  Sender: FDA-Public Use
  Company Number: None

PATIENT
  Sex: Female
  Weight: 81.6475 kg

DRUGS (1)
  1. SPORANOX [Suspect]
     Indication: HISTOPLASMOSIS
     Dosage: 200 MG DAILY PO
     Route: 048
     Dates: start: 20080622, end: 20080628

REACTIONS (2)
  - DRUG ERUPTION [None]
  - IMPAIRED WORK ABILITY [None]
